FAERS Safety Report 16505514 (Version 4)
Quarter: 2020Q2

REPORT INFORMATION
  Report Type: Spontaneous
  Country: US (occurrence: US)
  Receive Date: 20190701
  Receipt Date: 20200424
  Transmission Date: 20200713
  Serious: No
  Sender: FDA-Public Use
  Company Number: US-SA-2019SA174863

PATIENT
  Age: 50 Year
  Sex: Female

DRUGS (2)
  1. DUPIXENT [Suspect]
     Active Substance: DUPILUMAB
     Indication: DERMATITIS
  2. DUPIXENT [Suspect]
     Active Substance: DUPILUMAB
     Indication: DERMATITIS ATOPIC
     Dosage: 300 MG, QOW
     Route: 058
     Dates: start: 20190521

REACTIONS (5)
  - Product use issue [Unknown]
  - Dermatitis atopic [Unknown]
  - Injection site reaction [Recovered/Resolved]
  - Nausea [Recovered/Resolved]
  - Injection site mass [Recovering/Resolving]

NARRATIVE: CASE EVENT DATE: 2019
